FAERS Safety Report 8260821-4 (Version None)
Quarter: 2012Q1

REPORT INFORMATION
  Report Type: 
  Country: None (occurrence: None)
  Receive Date: 20120327
  Receipt Date: 20090508
  Transmission Date: 20120608
  Serious: Yes (Disabling)
  Sender: FDA-Public Use
  Company Number: PHEH2009US04425

PATIENT
  Age: 47 Year
  Sex: Female

DRUGS (4)
  1. ATIVAN [Concomitant]
  2. GLEEVEC [Suspect]
     Indication: DERMATOFIBROSARCOMA
     Dosage: 400 MG, QD, ORAL
     Route: 048
     Dates: start: 20090311, end: 20090430
  3. ZOCOR [Concomitant]
  4. SYNTHROID [Concomitant]

REACTIONS (4)
  - PAIN [None]
  - NUCLEAR MAGNETIC RESONANCE IMAGING [None]
  - DISEASE PROGRESSION [None]
  - NEOPLASM PROGRESSION [None]
